FAERS Safety Report 9350595 (Version 1)
Quarter: 2013Q2

REPORT INFORMATION
  Report Type: Report from Study
  Country: SK (occurrence: SK)
  Receive Date: 20130617
  Receipt Date: 20130617
  Transmission Date: 20140414
  Serious: Yes (Other)
  Sender: FDA-Public Use
  Company Number: SK-JNJFOC-20130602225

PATIENT
  Age: 69 Year
  Sex: Male
  Weight: 120 kg

DRUGS (14)
  1. XARELTO [Suspect]
     Indication: THROMBOSIS PROPHYLAXIS
     Route: 048
     Dates: start: 20130503
  2. XARELTO [Suspect]
     Indication: THROMBOSIS PROPHYLAXIS
     Route: 048
     Dates: start: 20130430, end: 20130529
  3. XARELTO [Suspect]
     Indication: CEREBROVASCULAR ACCIDENT PROPHYLAXIS
     Route: 048
     Dates: start: 20130503
  4. XARELTO [Suspect]
     Indication: CEREBROVASCULAR ACCIDENT PROPHYLAXIS
     Route: 048
     Dates: start: 20130430, end: 20130529
  5. FURON [Concomitant]
     Route: 065
     Dates: start: 2008
  6. CAVINTON [Concomitant]
     Route: 065
     Dates: start: 2008
  7. CLOPIDOGREL [Concomitant]
     Route: 065
     Dates: start: 201303, end: 201303
  8. AULIN [Concomitant]
     Route: 065
     Dates: start: 2008
  9. CONCOR COR [Concomitant]
     Route: 065
     Dates: start: 20110816
  10. CONDROSULF [Concomitant]
     Route: 065
     Dates: start: 20111108
  11. ASPIRIN PROTECT [Concomitant]
     Route: 065
     Dates: start: 201303, end: 20130502
  12. ASPIRIN PROTECT [Concomitant]
     Route: 065
     Dates: start: 20130529
  13. TRITACE [Concomitant]
     Route: 065
     Dates: start: 2008
  14. MILURIT [Concomitant]
     Route: 065
     Dates: start: 2008

REACTIONS (2)
  - Blood creatinine increased [Unknown]
  - Myalgia [Unknown]
